FAERS Safety Report 10257674 (Version 2)
Quarter: 2014Q3

REPORT INFORMATION
  Report Type: Spontaneous
  Country: GB (occurrence: None)
  Receive Date: 20140620
  Receipt Date: 20140715
  Transmission Date: 20150326
  Serious: Yes (Other)
  Sender: FDA-Public Use
  Company Number: 2395527

PATIENT
  Age: 46 Year
  Sex: Male

DRUGS (3)
  1. VINCRISTINE SULFATE. [Suspect]
     Active Substance: VINCRISTINE SULFATE
     Indication: CHEMOTHERAPY
  2. PROCARBAZINE [Suspect]
     Active Substance: PROCARBAZINE
     Indication: CHEMOTHERAPY
  3. LOMUSTINE. [Suspect]
     Active Substance: LOMUSTINE
     Indication: CHEMOTHERAPY

REACTIONS (2)
  - Bone marrow toxicity [None]
  - Full blood count abnormal [None]
